FAERS Safety Report 18426231 (Version 1)
Quarter: 2020Q4

REPORT INFORMATION
  Report Type: Spontaneous
  Country: US (occurrence: US)
  Receive Date: 20201026
  Receipt Date: 20201026
  Transmission Date: 20210114
  Serious: No
  Sender: FDA-Public Use
  Company Number: US-ENCUBE-000012

PATIENT
  Sex: Male

DRUGS (1)
  1. DICLOFENAC SODIUM 1% TOPICAL GEL [Suspect]
     Active Substance: DICLOFENAC SODIUM
     Indication: ARTHRITIS
     Route: 061

REACTIONS (1)
  - Alopecia [Not Recovered/Not Resolved]
